FAERS Safety Report 18987429 (Version 1)
Quarter: 2021Q1

REPORT INFORMATION
  Report Type: Spontaneous
  Country: US (occurrence: US)
  Receive Date: 20210309
  Receipt Date: 20210309
  Transmission Date: 20210420
  Serious: Yes (Death)
  Sender: FDA-Public Use
  Company Number: None

PATIENT
  Sex: Male

DRUGS (2)
  1. EPCLUSA [Suspect]
     Active Substance: SOFOSBUVIR\VELPATASVIR
     Indication: TYPE V HYPERLIPIDAEMIA
     Route: 048
     Dates: start: 20201207, end: 20210216
  2. EPCLUSA [Suspect]
     Active Substance: SOFOSBUVIR\VELPATASVIR
     Indication: ESSENTIAL HYPERTENSION
     Route: 048
     Dates: start: 20201207, end: 20210216

REACTIONS (1)
  - Death [None]
